FAERS Safety Report 4831807-4 (Version None)
Quarter: 2005Q4

REPORT INFORMATION
  Report Type: 
  Country: None (occurrence: None)
  Receive Date: 20051118
  Receipt Date: 20051011
  Transmission Date: 20060501
  Serious: Yes (Other)
  Sender: FDA-Public Use
  Company Number: FR-NOVOPROD-247707

PATIENT
  Age: 82 Year
  Sex: Male
  Weight: 61 kg

DRUGS (3)
  1. LEVEMIR [Suspect]
     Indication: DIABETES MELLITUS
     Dosage: 14 IU, BID
     Route: 058
     Dates: start: 20051006, end: 20051007
  2. LEVOTHYROX [Concomitant]
     Dosage: 25 MG/KG, UNK
     Dates: start: 20040101
  3. DILTIAZEM HYDROCHLORIDE [Concomitant]
     Dosage: 200 MG, UNK
     Dates: start: 20030819

REACTIONS (1)
  - DYSPNOEA [None]
